FAERS Safety Report 9153344 (Version 1)
Quarter: 2013Q1

REPORT INFORMATION
  Report Type: Spontaneous
  Country: GB (occurrence: None)
  Receive Date: 20130204
  Receipt Date: 20130204
  Transmission Date: 20140127
  Serious: Yes (Hospitalization)
  Sender: FDA-Public Use
  Company Number: DKLU1088483

PATIENT
  Age: 5 Year
  Sex: Male
  Weight: 15 kg

DRUGS (12)
  1. COSMEGEN [Suspect]
     Indication: NEOPLASM MALIGNANT
     Dosage: 1 MG MILLIGRAM(S), 1/1 CYCLICAL, INTRAVENOUS (NOT OTHERWISE SPECIFIED)
     Route: 042
     Dates: start: 20120720
  2. DOXORUBICIN HYDROCHLORIDE [Suspect]
     Indication: NEOPLASM MALIGNANT
     Dosage: INTRAVENOUS (NOT OTHERWISE SPECIFIED)
     Route: 042
     Dates: start: 20120721
  3. IFOSFAMIDE [Suspect]
     Indication: NEOPLASM MALIGNANT
     Dosage: INTRAVENOUS (NOT OTHERWISE SPECIFIED)
     Route: 042
     Dates: start: 20120720
  4. VINCRISTINE SULFATE [Suspect]
     Indication: NEOPLASM MALIGNANT
     Dosage: 1 MG (MILLIGRAM(S), 1/1 WEEK, INTRAVENOUS (NOT OTHERWISE SPECIFIED)
     Route: 042
     Dates: start: 20120720
  5. CHLORHEXIDINE (CHLORHEXIDNE) [Concomitant]
  6. CO-TRIMOXAZOLE (CO-TRUMOXAZOLE) [Concomitant]
  7. GRANISETRON (GRANISETRON) [Concomitant]
  8. METOCLOPRAMIDE (METOCLOPRAMIDE) [Concomitant]
  9. MOVICOL [Concomitant]
  10. ONDANSETRON (ONDANSETRON) [Concomitant]
  11. ORAMORPH (MORPHINE SULFATE PENTAHYDRATE) [Concomitant]
  12. PARACETAMOL (PARACETAMOL) [Concomitant]

REACTIONS (2)
  - Hypophagia [None]
  - Febrile neutropenia [None]
